FAERS Safety Report 4772134-3 (Version None)
Quarter: 2005Q3

REPORT INFORMATION
  Report Type: 
  Country: None (occurrence: None)
  Receive Date: 20050916
  Receipt Date: 20050902
  Transmission Date: 20060218
  Serious: Yes (Other)
  Sender: FDA-Public Use
  Company Number: GXKR2005BR01557

PATIENT
  Age: 82 Year
  Sex: Female
  Weight: 70 kg

DRUGS (3)
  1. CAPTOPRIL [Suspect]
     Indication: HYPERTENSION
     Dosage: QD, ORAL
     Route: 048
  2. ASPIRIN [Concomitant]
  3. CLORANA (HYDROCHLOROTHIAZIDE) [Concomitant]

REACTIONS (8)
  - ASTHENIA [None]
  - CARDIOMEGALY [None]
  - CATARACT OPERATION [None]
  - DIZZINESS [None]
  - EYE EXCISION [None]
  - GLAUCOMA [None]
  - MALAISE [None]
  - PLATELET COUNT DECREASED [None]
